FAERS Safety Report 18074132 (Version 1)
Quarter: 2020Q3

REPORT INFORMATION
  Report Type: Spontaneous
  Country: US (occurrence: US)
  Receive Date: 20200727
  Receipt Date: 20200727
  Transmission Date: 20201103
  Serious: No
  Sender: FDA-Public Use
  Company Number: US-SA-2020SA192605

PATIENT

DRUGS (1)
  1. LANTUS SOLOSTAR [Suspect]
     Active Substance: INSULIN GLARGINE
     Indication: TYPE 2 DIABETES MELLITUS
     Dosage: SHE ADMINISTERS 40 IU AND THEN GIVES ANOTHER INJECTION OF 45 IU TO TOTAL THE 85 IU PRESCRIBED
     Route: 065

REACTIONS (2)
  - Wrong technique in device usage process [Unknown]
  - Intentional product misuse [Unknown]
